FAERS Safety Report 8505525-5 (Version None)
Quarter: 2012Q2

REPORT INFORMATION
  Report Type: 
  Country: None (occurrence: None)
  Receive Date: 20120405
  Receipt Date: 20090922
  Transmission Date: 20120825
  Serious: Yes (Life-Threatening, Other)
  Sender: FDA-Public Use
  Company Number: PHEH2009US11460

PATIENT
  Sex: Female

DRUGS (1)
  1. RECLAST [Suspect]
     Dosage: ONCE/SINGLE USE, INFUSION

REACTIONS (6)
  - VOMITING [None]
  - DIARRHOEA [None]
  - ASTHENIA [None]
  - MALAISE [None]
  - INFLUENZA [None]
  - PAIN [None]
